FAERS Safety Report 9993675 (Version 4)
Quarter: 2014Q2

REPORT INFORMATION
  Report Type: Spontaneous
  Country: JP (occurrence: JP)
  Receive Date: 20140310
  Receipt Date: 20140430
  Transmission Date: 20141212
  Serious: Yes (Other)
  Sender: FDA-Public Use
  Company Number: JP-ASTRAZENECA-2014SE16129

PATIENT
  Age: 9747 Day
  Sex: Female

DRUGS (2)
  1. NEXIUM [Suspect]
     Route: 048
     Dates: start: 20140213, end: 20140224
  2. GASLON [Concomitant]
     Route: 048

REACTIONS (3)
  - Oculomucocutaneous syndrome [Unknown]
  - Aphagia [Unknown]
  - Diarrhoea [Recovered/Resolved]
